FAERS Safety Report 8973350 (Version 1)
Quarter: 2012Q4

REPORT INFORMATION
  Report Type: 
  Country: US (occurrence: US)
  Receive Date: 20121218
  Receipt Date: 20121218
  Transmission Date: 20130627
  Serious: No
  Sender: FDA-Public Use
  Company Number: US-BRISTOL-MYERS SQUIBB COMPANY-16940629

PATIENT
  Age: 32 Year
  Sex: Female

DRUGS (8)
  1. ABILIFY [Suspect]
     Indication: MOOD SWINGS
     Dosage: from 06Jun2012:5mg
Increased to 10mg/daily
     Route: 048
     Dates: start: 20111020, end: 20120611
  2. ABILIFY [Suspect]
     Indication: MENTAL RETARDATION
     Dosage: from 06Jun2012:5mg
Increased to 10mg/daily
     Route: 048
     Dates: start: 20111020, end: 20120611
  3. ABILIFY [Suspect]
     Indication: PICA
     Dosage: from 06Jun2012:5mg
Increased to 10mg/daily
     Route: 048
     Dates: start: 20111020, end: 20120611
  4. LEXAPRO [Suspect]
     Indication: MENTAL RETARDATION
     Dosage: Reduced to 5 mg
  5. LEXAPRO [Suspect]
     Indication: PICA
     Dosage: Reduced to 5 mg
  6. LEXAPRO [Suspect]
     Indication: MOOD SWINGS
     Dosage: Reduced to 5 mg
  7. COGENTIN [Suspect]
     Dosage: on 07Jun2012 dose decreased to 1 mg/2/day
  8. DEPAKOTE ER [Concomitant]
     Dosage: 250mg qam, 750 mg/2/day

REACTIONS (6)
  - Dyskinesia [Unknown]
  - Swollen tongue [Unknown]
  - Confusional state [Unknown]
  - Dysarthria [Not Recovered/Not Resolved]
  - Regurgitation [Recovered/Resolved]
  - Tremor [Unknown]
